FAERS Safety Report 19425667 (Version 1)
Quarter: 2021Q2

REPORT INFORMATION
  Report Type: Spontaneous
  Country: ES (occurrence: ES)
  Receive Date: 20210616
  Receipt Date: 20210616
  Transmission Date: 20210717
  Serious: Yes (Disabling, Other)
  Sender: FDA-Public Use
  Company Number: ES-TAKEDA-2021TUS036239

PATIENT
  Age: 45 Year
  Sex: Male

DRUGS (2)
  1. ALBUMINA HUMANA [Suspect]
     Active Substance: ALBUMIN HUMAN
     Indication: HEPATORENAL SYNDROME
     Route: 042
  2. TERLIPRESSIN [Suspect]
     Active Substance: TERLIPRESSIN
     Indication: HEPATORENAL SYNDROME
     Dosage: 1MG, Q4HR
     Route: 042

REACTIONS (4)
  - Skin lesion [Recovered/Resolved]
  - Soft tissue necrosis [Not Recovered/Not Resolved]
  - Purpura [Recovered/Resolved]
  - Umbilical hernia [Unknown]
